FAERS Safety Report 8000343-9 (Version None)
Quarter: 2011Q4

REPORT INFORMATION
  Report Type: 
  Country: None (occurrence: None)
  Receive Date: 20111222
  Receipt Date: 20111219
  Transmission Date: 20120403
  Serious: Yes (Hospitalization)
  Sender: FDA-Public Use
  Company Number: US-AMGEN-USASP2011067588

PATIENT
  Age: 50 Year
  Sex: Female

DRUGS (4)
  1. ENBREL [Suspect]
     Indication: RHEUMATOID ARTHRITIS
     Dosage: 50 MG, QWK
     Dates: start: 20080101, end: 20111001
  2. ENBREL [Suspect]
     Indication: SARCOIDOSIS
  3. ENBREL [Suspect]
     Indication: SYSTEMIC LUPUS ERYTHEMATOSUS
  4. ENBREL [Suspect]
     Indication: SJOGREN'S SYNDROME

REACTIONS (6)
  - EXCESSIVE SKIN [None]
  - CONNECTIVE TISSUE DISORDER [None]
  - RECTAL PROLAPSE [None]
  - CUTANEOUS SARCOIDOSIS [None]
  - INTESTINAL OBSTRUCTION [None]
  - WEIGHT DECREASED [None]
